FAERS Safety Report 7053907-3 (Version None)
Quarter: 2010Q4

REPORT INFORMATION
  Report Type: 
  Country: None (occurrence: None)
  Receive Date: 20101020
  Receipt Date: 20101013
  Transmission Date: 20110411
  Serious: Yes (Other)
  Sender: FDA-Public Use
  Company Number: US-JNJCH-2010020314

PATIENT
  Sex: Male

DRUGS (1)
  1. CHILDREN'S ZYRTEC ALLERGY [Suspect]
     Indication: PRODUCT USED FOR UNKNOWN INDICATION
     Dosage: TEXT:3-5 ML ONCE DAILY
     Route: 048
     Dates: start: 20090901, end: 20100401

REACTIONS (2)
  - DEAFNESS [None]
  - PRODUCT QUALITY ISSUE [None]
